FAERS Safety Report 24329108 (Version 2)
Quarter: 2024Q3

REPORT INFORMATION
  Report Type: Other
  Country: US (occurrence: US)
  Receive Date: 20240917
  Receipt Date: 20240930
  Transmission Date: 20241017
  Serious: No
  Sender: TRAVERE THERAPEUTICS
  Company Number: US-TRAVERE-2024TVT00859

PATIENT
  Age: 41 Year
  Sex: Female

DRUGS (1)
  1. FILSPARI [Suspect]
     Active Substance: SPARSENTAN
     Indication: IgA nephropathy
     Route: 048
     Dates: start: 20240823

REACTIONS (6)
  - Fatigue [None]
  - Hypotension [Unknown]
  - Decreased appetite [Unknown]
  - Photopsia [Unknown]
  - Anxiety [Unknown]
  - Depression [Unknown]
